FAERS Safety Report 9283600 (Version 2)
Quarter: 2013Q2

REPORT INFORMATION
  Report Type: Report from Study
  Country: US (occurrence: US)
  Receive Date: 20130510
  Receipt Date: 20130521
  Transmission Date: 20140414
  Serious: Yes (Death, Other)
  Sender: FDA-Public Use
  Company Number: PHHO2012US002017

PATIENT
  Age: 60 Year
  Sex: Female
  Weight: 46.5 kg

DRUGS (10)
  1. ZOLEDRONATE [Suspect]
     Indication: METASTASES TO BONE
     Dosage: 4 MG, QMO
     Route: 042
     Dates: start: 20110201, end: 20120104
  2. ZOMETA [Suspect]
     Dosage: 4 MG, QD
     Route: 042
     Dates: start: 200907, end: 201012
  3. VITAMIN D [Concomitant]
     Indication: METASTASES TO BONE
  4. CALCIUM [Concomitant]
     Indication: METASTASES TO BONE
  5. TAMOXIFEN [Concomitant]
     Dosage: UNK
     Dates: start: 200907
  6. CALCIUM W/VITAMIN D NOS [Concomitant]
     Indication: PROPHYLAXIS
     Dosage: UNK
     Dates: start: 20110124
  7. BISACODYL [Concomitant]
     Indication: PROPHYLAXIS
     Dosage: UNK
     Dates: start: 20110402, end: 20110822
  8. OXYCONTIN [Concomitant]
     Indication: PAIN
     Dosage: UNK
     Dates: start: 20110424, end: 20110524
  9. MS CONTIN [Concomitant]
     Indication: PAIN
     Dosage: UNK
     Dates: start: 20110524
  10. LISTERINE [Concomitant]

REACTIONS (2)
  - Osteonecrosis of jaw [Not Recovered/Not Resolved]
  - Chronic obstructive pulmonary disease [Fatal]
